FAERS Safety Report 10371751 (Version 6)
Quarter: 2014Q4

REPORT INFORMATION
  Report Type: Report from Study
  Country: US (occurrence: US)
  Receive Date: 20140808
  Receipt Date: 20141222
  Transmission Date: 20150528
  Serious: Yes (Hospitalization, Other)
  Sender: FDA-Public Use
  Company Number: US-BAYER-2014-101279

PATIENT
  Age: 78 Year
  Sex: Female

DRUGS (3)
  1. STIVARGA [Suspect]
     Active Substance: REGORAFENIB
     Indication: RECTAL CANCER
     Dosage: 40MG, 3 TABLETS DAILY
     Route: 048
     Dates: start: 20140625, end: 20140626
  2. STIVARGA [Suspect]
     Active Substance: REGORAFENIB
     Indication: RECTAL CANCER
     Dosage: 40MG, 3 TABLETS DAILY
     Route: 048
     Dates: start: 20140805, end: 20141216
  3. STIVARGA [Suspect]
     Active Substance: REGORAFENIB
     Indication: RECTAL CANCER
     Dosage: 40MG, 3 TABLETS DAILY
     Route: 048
     Dates: start: 20140627, end: 20140729

REACTIONS (24)
  - Haematemesis [Not Recovered/Not Resolved]
  - Abdominal pain [Recovered/Resolved]
  - Blood potassium decreased [None]
  - Fatigue [Not Recovered/Not Resolved]
  - Dry mouth [None]
  - Muscle spasms [None]
  - Disorientation [None]
  - Haemorrhage [Not Recovered/Not Resolved]
  - Blister [Recovered/Resolved]
  - Rash vesicular [None]
  - Sensory disturbance [None]
  - Eye inflammation [Recovered/Resolved]
  - Muscle spasms [Not Recovered/Not Resolved]
  - Neoplasm [Not Recovered/Not Resolved]
  - Platelet count decreased [Recovered/Resolved]
  - Decreased appetite [Recovering/Resolving]
  - Vomiting [Not Recovered/Not Resolved]
  - Haemorrhage [None]
  - Chest pain [Recovered/Resolved]
  - Abdominal pain upper [Recovering/Resolving]
  - Skin mass [Not Recovered/Not Resolved]
  - Gingival pain [Not Recovered/Not Resolved]
  - Hyperkeratosis [Not Recovered/Not Resolved]
  - Nausea [Not Recovered/Not Resolved]

NARRATIVE: CASE EVENT DATE: 20140625
